FAERS Safety Report 7027068-0 (Version None)
Quarter: 2010Q4

REPORT INFORMATION
  Report Type: 
  Country: None (occurrence: None)
  Receive Date: 20101004
  Receipt Date: 20100924
  Transmission Date: 20110411
  Serious: Yes (Hospitalization, Other)
  Sender: FDA-Public Use
  Company Number: US-AMGEN-QUU432011

PATIENT
  Sex: Male
  Weight: 99.2 kg

DRUGS (4)
  1. NPLATE [Suspect]
     Indication: IDIOPATHIC THROMBOCYTOPENIC PURPURA
     Dates: start: 20100113
  2. PREDNISONE [Concomitant]
     Dates: start: 20091222
  3. OXYGEN [Concomitant]
  4. INSULIN [Concomitant]

REACTIONS (6)
  - ARRHYTHMIA [None]
  - CARDIAC FAILURE CONGESTIVE [None]
  - ECCHYMOSIS [None]
  - FATIGUE [None]
  - INCISION SITE HAEMORRHAGE [None]
  - PERIORBITAL HAEMATOMA [None]
